FAERS Safety Report 12837736 (Version 1)
Quarter: 2016Q4

REPORT INFORMATION
  Report Type: Spontaneous
  Country: NL (occurrence: NL)
  Receive Date: 20161012
  Receipt Date: 20161012
  Transmission Date: 20170207
  Serious: Yes (Hospitalization, Other)
  Sender: FDA-Public Use
  Company Number: NL-APOTEX-2016AP012686

PATIENT
  Age: 56 Year
  Sex: Female

DRUGS (9)
  1. MYCOPHENOLATE MOFETIL APOTEX CAPSULES [Suspect]
     Active Substance: MYCOPHENOLATE MOFETIL
     Indication: LUPUS NEPHRITIS
  2. METHYLPREDNISOLONE. [Suspect]
     Active Substance: METHYLPREDNISOLONE
     Dosage: UNKNOWN DOSAGE
     Route: 042
  3. MYCOPHENOLATE MOFETIL APOTEX CAPSULES [Suspect]
     Active Substance: MYCOPHENOLATE MOFETIL
     Indication: NEPHROTIC SYNDROME
     Dosage: UNK, DOSE INCREASE
     Route: 048
  4. PREDNISON APOTEX TABLETTEN [Suspect]
     Active Substance: PREDNISONE
     Indication: SYSTEMIC LUPUS ERYTHEMATOSUS
     Dosage: 20 MG, QD
     Route: 048
  5. PREDNISON APOTEX TABLETTEN [Suspect]
     Active Substance: PREDNISONE
     Indication: NEPHROTIC SYNDROME
     Dosage: UNK, DOSE INCREASED
     Route: 048
  6. PREDNISON APOTEX TABLETTEN [Suspect]
     Active Substance: PREDNISONE
     Indication: LUPUS NEPHRITIS
  7. MYCOPHENOLATE MOFETIL APOTEX CAPSULES [Suspect]
     Active Substance: MYCOPHENOLATE MOFETIL
     Indication: SYSTEMIC LUPUS ERYTHEMATOSUS
     Dosage: 1250 MG, BID
     Route: 048
  8. CEFTRIAXONE. [Concomitant]
     Active Substance: CEFTRIAXONE
     Indication: URINARY TRACT INFECTION
     Dosage: 2 G, QD
     Route: 042
  9. METHYLPREDNISOLONE. [Suspect]
     Active Substance: METHYLPREDNISOLONE
     Indication: SYSTEMIC LUPUS ERYTHEMATOSUS
     Dosage: 1000 MG, DAILY
     Route: 042

REACTIONS (5)
  - Hepatic failure [Recovering/Resolving]
  - Histoplasmosis disseminated [Recovering/Resolving]
  - Urinary tract infection [None]
  - Pulmonary embolism [None]
  - Respiratory failure [Recovering/Resolving]
